FAERS Safety Report 9146571 (Version 4)
Quarter: 2013Q3

REPORT INFORMATION
  Report Type: Spontaneous
  Country: US (occurrence: US)
  Receive Date: 20130307
  Receipt Date: 20130717
  Transmission Date: 20140515
  Serious: Yes (Other)
  Sender: FDA-Public Use
  Company Number: US-PFIZER INC-2013078479

PATIENT
  Age: 63 Year
  Sex: Female
  Weight: 91 kg

DRUGS (2)
  1. CELEBREX [Suspect]
     Indication: ARTHRITIS
     Dosage: 200 MG, 1X/DAY
     Route: 048
  2. LEVOTHYROXINE [Concomitant]
     Indication: HYPOTHYROIDISM
     Dosage: UNK

REACTIONS (6)
  - Foot fracture [Recovering/Resolving]
  - Fall [Unknown]
  - Arthralgia [Unknown]
  - Endometrial disorder [Recovered/Resolved]
  - Bladder disorder [Recovered/Resolved]
  - Impaired driving ability [Unknown]
